FAERS Safety Report 25947158 (Version 1)
Quarter: 2025Q4

REPORT INFORMATION
  Report Type: Spontaneous
  Country: EU (occurrence: EU)
  Receive Date: 20251022
  Receipt Date: 20251022
  Transmission Date: 20260117
  Serious: Yes (Hospitalization, Other)
  Sender: RANBAXY
  Company Number: EU-AFSSAPS-AVCN2025000435

PATIENT
  Age: 20 Year
  Sex: Male

DRUGS (5)
  1. SERTRALINE [Suspect]
     Active Substance: SERTRALINE HYDROCHLORIDE
     Indication: Product used for unknown indication
     Dosage: 300 MG/DAY
     Route: 048
  2. NUTMEG [Suspect]
     Active Substance: NUTMEG
     Indication: Product used for unknown indication
     Dosage: 9G PER SERVING
     Route: 048
     Dates: start: 202504
  3. NUTMEG [Suspect]
     Active Substance: NUTMEG
     Dosage: 15G
     Route: 048
     Dates: start: 20250509, end: 20250509
  4. NUTMEG [Suspect]
     Active Substance: NUTMEG
     Dosage: 20G
     Route: 048
     Dates: start: 20250619, end: 20250619
  5. ALPRAZOLAM [Suspect]
     Active Substance: ALPRAZOLAM
     Indication: Product used for unknown indication
     Dosage: 1-2 G/DAY
     Route: 048

REACTIONS (8)
  - Drug abuse [Recovering/Resolving]
  - Anxiety [Recovering/Resolving]
  - Psychiatric decompensation [Recovering/Resolving]
  - Delirium [Recovering/Resolving]
  - Psychotic disorder [Recovering/Resolving]
  - Nausea [Recovered/Resolved]
  - Treatment noncompliance [Recovered/Resolved]
  - Abdominal pain upper [Recovered/Resolved]

NARRATIVE: CASE EVENT DATE: 20250510
